FAERS Safety Report 8201729-X (Version None)
Quarter: 2012Q1

REPORT INFORMATION
  Report Type: 
  Country: None (occurrence: None)
  Receive Date: 20120312
  Receipt Date: 20120302
  Transmission Date: 20120608
  Serious: Yes (Other)
  Sender: FDA-Public Use
  Company Number: US-BAYER-2011-106553

PATIENT
  Age: 16 Year
  Sex: Female
  Weight: 68 kg

DRUGS (4)
  1. ANESTHESIA [Concomitant]
     Dosage: UNK
  2. MIRENA [Suspect]
     Indication: CONTRACEPTION
     Dosage: 20 MCG/24HR, CONT
     Route: 015
     Dates: start: 20090925, end: 20111129
  3. CONCERTA [Concomitant]
  4. TRAZODONE HCL [Concomitant]
     Dosage: 2 DF, UNK
     Dates: start: 20111116

REACTIONS (8)
  - PSYCHOTIC DISORDER [None]
  - HALLUCINATION, VISUAL [None]
  - HIRSUTISM [None]
  - SWELLING FACE [None]
  - INSULIN RESISTANCE [None]
  - MENSTRUATION DELAYED [None]
  - WEIGHT INCREASED [None]
  - PARANOIA [None]
